FAERS Safety Report 12237710 (Version 4)
Quarter: 2024Q1

REPORT INFORMATION
  Report Type: Spontaneous
  Country: US (occurrence: US)
  Receive Date: 20160405
  Receipt Date: 20240319
  Transmission Date: 20240410
  Serious: Yes (Hospitalization, Other)
  Sender: FDA-Public Use
  Company Number: US-AMGEN-USASP2016039809

PATIENT
  Age: 71 Year
  Sex: Male

DRUGS (10)
  1. ENBREL [Suspect]
     Active Substance: ETANERCEPT
     Indication: Ankylosing spondylitis
     Dosage: 50 MILLIGRAM, QWK
     Route: 058
     Dates: start: 2006, end: 2013
  2. ENBREL [Suspect]
     Active Substance: ETANERCEPT
     Dosage: 50 MILLIGRAM, QWK
     Route: 058
  3. REMICADE [Suspect]
     Active Substance: INFLIXIMAB
     Indication: Ankylosing spondylitis
     Dosage: UNK
     Route: 065
     Dates: end: 201501
  4. HUMIRA [Suspect]
     Active Substance: ADALIMUMAB
     Indication: Product used for unknown indication
     Dosage: UNK
     Route: 065
  5. CELEBREX [Concomitant]
     Active Substance: CELECOXIB
     Indication: Ankylosing spondylitis
     Dosage: 200 MILLIGRAM, BID
     Route: 065
  6. PREDNISONE [Concomitant]
     Active Substance: PREDNISONE
     Indication: Ankylosing spondylitis
     Dosage: 5 MILLIGRAM, QD
     Route: 065
  7. PREDNISONE [Concomitant]
     Active Substance: PREDNISONE
     Dosage: 2 MILLIGRAM
     Route: 065
  8. PREDNISONE [Concomitant]
     Active Substance: PREDNISONE
     Dosage: UNK MILLIGRAM
     Route: 065
  9. COVID-19 vaccine [Concomitant]
     Indication: Product used for unknown indication
     Dosage: UNK
     Route: 065
     Dates: start: 2021
  10. RIMADYL [Concomitant]
     Active Substance: CARPROFEN
     Indication: Product used for unknown indication
     Dosage: UNK
     Route: 065
     Dates: start: 2013

REACTIONS (20)
  - Histoplasmosis [Recovered/Resolved]
  - Shoulder arthroplasty [Unknown]
  - Prostate cancer [Unknown]
  - Autoimmune disorder [Unknown]
  - Decreased immune responsiveness [Unknown]
  - Product dose omission issue [Unknown]
  - Product storage error [Unknown]
  - Tooth disorder [Unknown]
  - Dental caries [Unknown]
  - Tooth injury [Unknown]
  - Tooth extraction [Unknown]
  - Neck pain [Unknown]
  - Vertigo [Recovered/Resolved]
  - Dizziness [Recovered/Resolved]
  - Nerve compression [Recovered/Resolved]
  - COVID-19 [Unknown]
  - Sight disability [Unknown]
  - Pain [Unknown]
  - Gastrointestinal disorder [Unknown]
  - Intercepted product administration error [Unknown]

NARRATIVE: CASE EVENT DATE: 20160328
